FAERS Safety Report 17339307 (Version 2)
Quarter: 2020Q1

REPORT INFORMATION
  Report Type: Spontaneous
  Country: US (occurrence: US)
  Receive Date: 20200129
  Receipt Date: 20200204
  Transmission Date: 20200409
  Serious: No
  Sender: FDA-Public Use
  Company Number: US-PFIZER INC-2020037917

PATIENT
  Age: 84 Year
  Sex: Female
  Weight: 74.84 kg

DRUGS (1)
  1. ADVIL [Suspect]
     Active Substance: IBUPROFEN
     Indication: PAIN
     Dosage: 10 DF, UNK (TAKES 10 A DAY)

REACTIONS (3)
  - Overdose [Unknown]
  - Blood sodium increased [Unknown]
  - Blood pressure abnormal [Unknown]
